FAERS Safety Report 7219488-6 (Version None)
Quarter: 2011Q1

REPORT INFORMATION
  Report Type: 
  Country: None (occurrence: None)
  Receive Date: 20110111
  Receipt Date: 20110106
  Transmission Date: 20110831
  Serious: Yes (Other)
  Sender: FDA-Public Use
  Company Number: US-SANOFI-AVENTIS-2010SA076942

PATIENT
  Age: 76 Year
  Sex: Male
  Weight: 95 kg

DRUGS (7)
  1. MULTAQ [Suspect]
     Indication: ATRIAL FIBRILLATION
     Route: 048
     Dates: start: 20101209
  2. MULTAQ [Suspect]
     Indication: CARDIOVERSION
     Route: 048
     Dates: start: 20101209
  3. HYDROCHLOROTHIAZIDE [Concomitant]
  4. LIPITOR [Concomitant]
  5. NIASPAN [Concomitant]
  6. COZAAR [Concomitant]
  7. COUMADIN [Concomitant]

REACTIONS (3)
  - ATRIAL FIBRILLATION [None]
  - ABDOMINAL DISTENSION [None]
  - BREATH ODOUR [None]
